FAERS Safety Report 25528573 (Version 3)
Quarter: 2025Q3

REPORT INFORMATION
  Report Type: Spontaneous
  Country: CA (occurrence: CA)
  Receive Date: 20250708
  Receipt Date: 20250821
  Transmission Date: 20251021
  Serious: Yes (Hospitalization, Other)
  Sender: CSL BEHRING
  Company Number: CA-BEH-2025211167

PATIENT
  Age: 78 Year
  Sex: Female
  Weight: 54 kg

DRUGS (3)
  1. HUMAN IMMUNOGLOBULIN G [Suspect]
     Active Substance: HUMAN IMMUNOGLOBULIN G
     Indication: Hypogammaglobulinaemia
     Route: 042
     Dates: start: 20250616, end: 20250616
  2. ELRANATAMAB [Suspect]
     Active Substance: ELRANATAMAB
     Indication: Plasma cell myeloma
     Dosage: 75 MG, QOW (EVERY 2 WEEKS)
     Route: 058
     Dates: start: 20250523
  3. IBERDOMIDE [Suspect]
     Active Substance: IBERDOMIDE
     Indication: Plasma cell myeloma
     Dosage: 1 MG, QD
     Route: 048
     Dates: start: 20250523

REACTIONS (4)
  - Hypotension [Recovered/Resolved]
  - Febrile neutropenia [Recovered/Resolved]
  - Body temperature increased [Recovered/Resolved]
  - Fatigue [Unknown]

NARRATIVE: CASE EVENT DATE: 20250601
